FAERS Safety Report 22074150 (Version 1)
Quarter: 2023Q1

REPORT INFORMATION
  Report Type: Spontaneous
  Country: US (occurrence: US)
  Receive Date: 20230308
  Receipt Date: 20230308
  Transmission Date: 20230417
  Serious: No
  Sender: FDA-Public Use
  Company Number: US-BRISTOL-MYERS SQUIBB COMPANY-2023-033174

PATIENT
  Age: 87 Year
  Sex: Female
  Weight: 35 kg

DRUGS (15)
  1. REVLIMID [Suspect]
     Active Substance: LENALIDOMIDE
     Indication: Plasma cell myeloma
     Route: 048
     Dates: start: 20230214
  2. LEVOTHYROXINE SODIUM [Concomitant]
     Active Substance: LEVOTHYROXINE SODIUM
     Indication: Product used for unknown indication
     Dosage: FREQUENCY: DAILY
     Route: 048
     Dates: start: 20230125
  3. LOSARTAN POTASSIUM [Concomitant]
     Active Substance: LOSARTAN POTASSIUM
     Indication: Product used for unknown indication
     Dosage: FREQUENCY: DAILY
     Route: 048
     Dates: start: 20230125
  4. METFORMIN HYDROCHLORIDE [Concomitant]
     Active Substance: METFORMIN HYDROCHLORIDE
     Indication: Product used for unknown indication
     Dosage: FREQUENCY: DAILY
     Route: 048
     Dates: start: 20230125
  5. SIMVASTATIN [Concomitant]
     Active Substance: SIMVASTATIN
     Indication: Product used for unknown indication
     Dosage: FREQUENCY: DAILY
     Route: 048
     Dates: start: 20230125
  6. CICLOPIROX OLAMINE [Concomitant]
     Active Substance: CICLOPIROX OLAMINE
     Indication: Product used for unknown indication
     Dosage: 0.77% EXTERNAL CREAM AS NEEDED
     Route: 048
     Dates: start: 20230125
  7. REPAGLINIDE [Concomitant]
     Active Substance: REPAGLINIDE
     Indication: Product used for unknown indication
     Route: 048
     Dates: start: 20230125
  8. VITAMIN D NOS [Concomitant]
     Active Substance: VITAMIN D NOS
     Indication: Product used for unknown indication
     Dosage: 2000
     Route: 048
     Dates: start: 20230125
  9. INCRUSE ELLIPTA [Concomitant]
     Active Substance: UMECLIDINIUM BROMIDE
     Indication: Product used for unknown indication
     Dosage: DOSE: 62.5, DAILY
     Route: 048
     Dates: start: 20230125
  10. DONEPEZIL HYDROCHLORIDE [Concomitant]
     Active Substance: DONEPEZIL HYDROCHLORIDE
     Indication: Product used for unknown indication
     Dosage: FREQUENCY: DAILY
     Route: 048
     Dates: start: 20230125
  11. HYDROCHLOROTHIAZIDE\TRIAMTERENE [Concomitant]
     Active Substance: HYDROCHLOROTHIAZIDE\TRIAMTERENE
     Indication: Product used for unknown indication
     Dosage: DOSE: 37.5-25 MG, DAILY
     Route: 048
     Dates: start: 20230125
  12. MECLIZINE HYDROCHLORIDE [Concomitant]
     Active Substance: MECLIZINE HYDROCHLORIDE
     Indication: Product used for unknown indication
     Dosage: AS NEEDED
     Route: 048
     Dates: start: 20230131
  13. VITAMIN B12 [Concomitant]
     Active Substance: CYANOCOBALAMIN
     Indication: Product used for unknown indication
     Dosage: FREQUENCY: DAILY
     Route: 048
     Dates: start: 20230131
  14. ASPIRIN [Concomitant]
     Active Substance: ASPIRIN
     Indication: Product used for unknown indication
     Dosage: DELAYED RELEASE?FREQUENCY: DAILY
     Route: 048
     Dates: start: 20230131
  15. FERROUS SULFATE [Concomitant]
     Active Substance: FERROUS SULFATE
     Indication: Product used for unknown indication
     Dosage: DOSE: 325 65 (FE), DAILY
     Route: 048
     Dates: start: 20230131

REACTIONS (1)
  - Rash [Not Recovered/Not Resolved]

NARRATIVE: CASE EVENT DATE: 20230217
